FAERS Safety Report 5825778-1 (Version None)
Quarter: 2008Q3

REPORT INFORMATION
  Report Type: 
  Country: None (occurrence: None)
  Receive Date: 20080728
  Receipt Date: 20080728
  Transmission Date: 20090109
  Serious: Yes (Life-Threatening, Hospitalization)
  Sender: FDA-Public Use
  Company Number: None

PATIENT
  Age: 68 Year
  Sex: Male
  Weight: 92.0802 kg

DRUGS (10)
  1. METHOTREXATE [Suspect]
     Indication: RHEUMATOID ARTHRITIS
     Dosage: 17.5MG WEEKLY IM
     Route: 030
     Dates: end: 20080527
  2. FELDENE [Concomitant]
  3. MOMETASONE CREAM [Concomitant]
  4. LASIX [Concomitant]
  5. HUMIRA [Concomitant]
  6. NORVASC [Concomitant]
  7. DIOVAN [Concomitant]
  8. VALIUM [Concomitant]
  9. RANITIDINE HCL [Concomitant]
  10. OMEPRAZOLE [Concomitant]

REACTIONS (6)
  - COUGH [None]
  - FATIGUE [None]
  - INFLUENZA [None]
  - OXYGEN SATURATION DECREASED [None]
  - PAIN [None]
  - PYREXIA [None]
